FAERS Safety Report 24874030 (Version 1)
Quarter: 2025Q1

REPORT INFORMATION
  Report Type: Spontaneous
  Country: US (occurrence: US)
  Receive Date: 20250122
  Receipt Date: 20250122
  Transmission Date: 20250409
  Serious: Yes (Other)
  Sender: AMGEN
  Company Number: US-AMGEN-USASP2025009704

PATIENT
  Age: 48 Year
  Sex: Female

DRUGS (24)
  1. PREDNISONE [Suspect]
     Active Substance: PREDNISONE
     Indication: Lymphocytic lymphoma
     Route: 065
  2. PREDNISONE [Suspect]
     Active Substance: PREDNISONE
     Indication: Dermatitis atopic
  3. PREDNISONE [Suspect]
     Active Substance: PREDNISONE
     Indication: Rosacea
  4. PREDNISONE [Suspect]
     Active Substance: PREDNISONE
     Indication: Chronic cutaneous lupus erythematosus
  5. DAPSONE [Concomitant]
     Active Substance: DAPSONE
     Indication: Lymphocytic lymphoma
  6. DAPSONE [Concomitant]
     Active Substance: DAPSONE
     Indication: Dermatitis atopic
  7. DAPSONE [Concomitant]
     Active Substance: DAPSONE
     Indication: Rosacea
  8. DAPSONE [Concomitant]
     Active Substance: DAPSONE
     Indication: Chronic cutaneous lupus erythematosus
  9. ISOTRETINOIN [Concomitant]
     Active Substance: ISOTRETINOIN
     Indication: Lymphocytic lymphoma
  10. ISOTRETINOIN [Concomitant]
     Active Substance: ISOTRETINOIN
     Indication: Dermatitis atopic
  11. ISOTRETINOIN [Concomitant]
     Active Substance: ISOTRETINOIN
     Indication: Rosacea
  12. ISOTRETINOIN [Concomitant]
     Active Substance: ISOTRETINOIN
     Indication: Chronic cutaneous lupus erythematosus
  13. BILASTINE [Concomitant]
     Active Substance: BILASTINE
     Indication: Lymphocytic lymphoma
  14. BILASTINE [Concomitant]
     Active Substance: BILASTINE
     Indication: Dermatitis atopic
  15. BILASTINE [Concomitant]
     Active Substance: BILASTINE
     Indication: Rosacea
  16. BILASTINE [Concomitant]
     Active Substance: BILASTINE
     Indication: Chronic cutaneous lupus erythematosus
  17. IVERMECTIN [Concomitant]
     Active Substance: IVERMECTIN
     Indication: Lymphocytic lymphoma
  18. IVERMECTIN [Concomitant]
     Active Substance: IVERMECTIN
     Indication: Dermatitis atopic
  19. IVERMECTIN [Concomitant]
     Active Substance: IVERMECTIN
     Indication: Rosacea
  20. IVERMECTIN [Concomitant]
     Active Substance: IVERMECTIN
     Indication: Chronic cutaneous lupus erythematosus
  21. METRONIDAZOLE [Concomitant]
     Active Substance: METRONIDAZOLE
     Indication: Lymphocytic lymphoma
  22. METRONIDAZOLE [Concomitant]
     Active Substance: METRONIDAZOLE
     Indication: Dermatitis atopic
  23. METRONIDAZOLE [Concomitant]
     Active Substance: METRONIDAZOLE
     Indication: Rosacea
  24. METRONIDAZOLE [Concomitant]
     Active Substance: METRONIDAZOLE
     Indication: Chronic cutaneous lupus erythematosus

REACTIONS (2)
  - Cutaneous T-cell lymphoma [Recovering/Resolving]
  - Treatment failure [Unknown]
